FAERS Safety Report 9655887 (Version 7)
Quarter: 2014Q2

REPORT INFORMATION
  Report Type: Spontaneous
  Country: AU (occurrence: AU)
  Receive Date: 20131030
  Receipt Date: 20140528
  Transmission Date: 20141212
  Serious: Yes (Hospitalization, Disabling, Other)
  Sender: FDA-Public Use
  Company Number: AU-AMGEN-AUSSP2013043953

PATIENT
  Age: 77 Year
  Sex: Male
  Weight: 90 kg

DRUGS (4)
  1. XGEVA [Suspect]
     Indication: METASTASES TO BONE
     Dosage: 120 MG, Q3WK
     Route: 058
     Dates: start: 20130416
  2. DOCETAXEL [Concomitant]
     Dosage: UNK UNK, Q3WK
     Route: 065
  3. PREDNISONE [Concomitant]
     Dosage: UNK
     Route: 065
  4. CALCIUM [Concomitant]
     Dosage: 600 MG, QD
     Route: 065

REACTIONS (13)
  - Fluid retention [Not Recovered/Not Resolved]
  - Pain [Not Recovered/Not Resolved]
  - Pain in extremity [Recovered/Resolved]
  - Pelvic neoplasm [Unknown]
  - Insomnia [Unknown]
  - Hearing impaired [Unknown]
  - Discomfort [Unknown]
  - Faecal incontinence [Unknown]
  - Weight increased [Unknown]
  - Dyspnoea [Not Recovered/Not Resolved]
  - Inappropriate schedule of drug administration [Not Recovered/Not Resolved]
  - Teeth brittle [Not Recovered/Not Resolved]
  - Drug dose omission [Recovered/Resolved]
